FAERS Safety Report 6805041-2 (Version None)
Quarter: 2010Q2

REPORT INFORMATION
  Report Type: 
  Country: None (occurrence: None)
  Receive Date: 20100628
  Receipt Date: 20070801
  Transmission Date: 20101027
  Serious: Yes (Other)
  Sender: FDA-Public Use
  Company Number: US-PFIZER INC-2007063856

PATIENT
  Sex: Female
  Weight: 89 kg

DRUGS (5)
  1. GENOTROPIN [Suspect]
     Indication: GROWTH HORMONE DEFICIENCY
     Route: 058
  2. SERZONE [Concomitant]
  3. WELLBUTRIN [Concomitant]
  4. TOPAMAX [Concomitant]
  5. LEVOTHROID [Concomitant]

REACTIONS (1)
  - HYPERGLYCAEMIA [None]
